FAERS Safety Report 12326949 (Version 2)
Quarter: 2016Q2

REPORT INFORMATION
  Report Type: Spontaneous
  Country: KR (occurrence: KR)
  Receive Date: 20160503
  Receipt Date: 20160523
  Transmission Date: 20160815
  Serious: Yes (Hospitalization, Other)
  Sender: FDA-Public Use
  Company Number: KR-BAYER-2016-076505

PATIENT
  Age: 52 Year
  Sex: Female

DRUGS (2)
  1. NEXAVAR [Suspect]
     Active Substance: SORAFENIB
     Indication: METASTASES TO LUNG
     Dosage: 600 UNK, UNK
     Dates: end: 201110
  2. NEXAVAR [Suspect]
     Active Substance: SORAFENIB
     Indication: METASTASES TO LUNG
     Dosage: 800 MG, QD
     Dates: start: 201105

REACTIONS (9)
  - Hemiplegia [None]
  - Thyroid cancer metastatic [None]
  - Headache [None]
  - Central nervous system lesion [None]
  - Off label use [None]
  - Lymphadenopathy mediastinal [None]
  - Therapeutic response unexpected [None]
  - Palmar-plantar erythrodysaesthesia syndrome [Recovering/Resolving]
  - Dizziness [None]

NARRATIVE: CASE EVENT DATE: 2011
